FAERS Safety Report 13819557 (Version 1)
Quarter: 2017Q3

REPORT INFORMATION
  Report Type: Report from Study
  Country: US (occurrence: US)
  Receive Date: 20170731
  Receipt Date: 20170731
  Transmission Date: 20171127
  Serious: Yes (Hospitalization)
  Sender: FDA-Public Use
  Company Number: US-IPSEN-CABO-17008784

PATIENT
  Sex: Male

DRUGS (15)
  1. CLINDAMYCIN. [Concomitant]
     Active Substance: CLINDAMYCIN
  2. IPRATROPIUM [Concomitant]
     Active Substance: IPRATROPIUM
  3. VITAMIN B12 [Concomitant]
     Active Substance: CYANOCOBALAMIN
  4. AMLODIPINE [Concomitant]
     Active Substance: AMLODIPINE BESYLATE
  5. SENEXON-S [Concomitant]
     Active Substance: DOCUSATE SODIUM\SENNOSIDES A AND B
  6. ELIQUIS [Suspect]
     Active Substance: APIXABAN
     Indication: THROMBOSIS
  7. VALACYCLOVIR [Concomitant]
     Active Substance: VALACYCLOVIR HYDROCHLORIDE
  8. AZELASTINE [Concomitant]
     Active Substance: AZELASTINE
  9. CLOBETASOL [Concomitant]
     Active Substance: CLOBETASOL
  10. DEXAMETHASON [Concomitant]
     Active Substance: DEXAMETHASONE
  11. SANCUSO [Concomitant]
     Active Substance: GRANISETRON
  12. CABOMETYX [Suspect]
     Active Substance: CABOZANTINIB S-MALATE
     Indication: RENAL CANCER
     Dosage: 40 MG, QD
     Route: 048
     Dates: end: 201703
  13. CABOMETYX [Suspect]
     Active Substance: CABOZANTINIB S-MALATE
     Dosage: 20 MG, QD
     Route: 048
     Dates: start: 20170415
  14. CARVEDILOL. [Concomitant]
     Active Substance: CARVEDILOL
  15. ALLOPURINOL. [Concomitant]
     Active Substance: ALLOPURINOL

REACTIONS (5)
  - Oral pain [Unknown]
  - Weight decreased [Unknown]
  - Internal haemorrhage [Unknown]
  - Thrombosis [Unknown]
  - Rash macular [Unknown]
